FAERS Safety Report 16845873 (Version 1)
Quarter: 2019Q3

REPORT INFORMATION
  Report Type: Spontaneous
  Country: US (occurrence: US)
  Receive Date: 20190924
  Receipt Date: 20190924
  Transmission Date: 20191005
  Serious: No
  Sender: FDA-Public Use
  Company Number: US-CATALYST PHARMACEUTICALS, INC-2019CAT00271

PATIENT
  Sex: Male
  Weight: 104.31 kg

DRUGS (3)
  1. FIRDAPSE [Suspect]
     Active Substance: AMIFAMPRIDINE
     Dosage: 40 - 50 MG PER DAY
     Route: 048
     Dates: start: 20190129, end: 201906
  2. FIRDAPSE [Suspect]
     Active Substance: AMIFAMPRIDINE
     Indication: MYASTHENIC SYNDROME
     Dosage: 10 MG, 6 TO 7 TIMES PER DAY
     Route: 048
     Dates: start: 20190129, end: 201906
  3. FIRDAPSE [Suspect]
     Active Substance: AMIFAMPRIDINE
     Dosage: 10 MG, 1X/DAY
     Route: 048
     Dates: start: 201906

REACTIONS (1)
  - Hepatic enzyme increased [Unknown]

NARRATIVE: CASE EVENT DATE: 2019
